FAERS Safety Report 18006014 (Version 1)
Quarter: 2020Q3

REPORT INFORMATION
  Report Type: Spontaneous
  Country: US (occurrence: US)
  Receive Date: 20200709
  Receipt Date: 20200709
  Transmission Date: 20201103
  Serious: No
  Sender: FDA-Public Use
  Company Number: None

PATIENT
  Age: 43 Year
  Sex: Female
  Weight: 77.85 kg

DRUGS (6)
  1. SAXENDA [Suspect]
     Active Substance: LIRAGLUTIDE
     Indication: OBESITY
     Dosage: ?          QUANTITY:1 INJECTION(S);?
     Route: 058
     Dates: start: 20200620, end: 20200705
  2. ESTROGEN [Concomitant]
     Active Substance: ESTROGENS
  3. MULTIVITAMIN [Concomitant]
     Active Substance: VITAMINS
  4. XANAX [Concomitant]
     Active Substance: ALPRAZOLAM
  5. EFFEXOR [Concomitant]
     Active Substance: VENLAFAXINE HYDROCHLORIDE
  6. PROGESTERONE. [Concomitant]
     Active Substance: PROGESTERONE

REACTIONS (4)
  - Muscle spasms [None]
  - Tinnitus [None]
  - Nausea [None]
  - Depression [None]

NARRATIVE: CASE EVENT DATE: 20200705
